FAERS Safety Report 8972020 (Version 2)
Quarter: 2013Q1

REPORT INFORMATION
  Report Type: Spontaneous
  Country: FR (occurrence: FR)
  Receive Date: 20121219
  Receipt Date: 20130307
  Transmission Date: 20140127
  Serious: Yes (Hospitalization)
  Sender: FDA-Public Use
  Company Number: FR-SANOFI-AVENTIS-2012SA088925

PATIENT
  Age: 52 Year
  Sex: Male

DRUGS (5)
  1. PLAQUENIL [Suspect]
     Indication: ENDOCARDITIS
     Route: 048
     Dates: start: 201110, end: 201210
  2. INEXIUM [Concomitant]
     Route: 048
     Dates: start: 201105
  3. DOXYCYCLINE [Concomitant]
     Indication: ENDOCARDITIS
     Route: 048
     Dates: start: 201105
  4. KARDEGIC [Concomitant]
     Route: 048
  5. CARDENSIEL [Concomitant]
     Route: 048
     Dates: start: 201202

REACTIONS (1)
  - Hypoglycaemia [Recovered/Resolved]
